FAERS Safety Report 21792873 (Version 1)
Quarter: 2022Q4

REPORT INFORMATION
  Report Type: Other
  Country: US (occurrence: None)
  Receive Date: 20221229
  Receipt Date: 20221229
  Transmission Date: 20230113
  Serious: Yes (Hospitalization)
  Sender: FDA-Public Use
  Company Number: US-ROCHE-3253372

PATIENT
  Sex: Female

DRUGS (2)
  1. OCREVUS [Suspect]
     Active Substance: OCRELIZUMAB
     Indication: Multiple sclerosis
     Dosage: NEXT HALF DOSE OF 300 MG WAS ON 02/OCT/2018
     Route: 042
     Dates: start: 20180917
  2. OCREVUS [Suspect]
     Active Substance: OCRELIZUMAB
     Dosage: SUBSEQUENT DOSES ON: 03/OCT/2019, 26/MAY/2020, 22/NOV/2020, 13/JUN/2021, 28/NOV/2021, 15/MAY/20222
     Route: 042
     Dates: start: 20190402

REACTIONS (1)
  - Gastrooesophageal reflux disease [Unknown]
